FAERS Safety Report 22005820 (Version 2)
Quarter: 2023Q1

REPORT INFORMATION
  Report Type: Spontaneous
  Country: FR (occurrence: FR)
  Receive Date: 20230217
  Receipt Date: 20230302
  Transmission Date: 20230418
  Serious: Yes (Life-Threatening, Hospitalization)
  Sender: FDA-Public Use
  Company Number: None

PATIENT
  Age: 73 Year
  Sex: Female

DRUGS (2)
  1. ECONAZOLE [Suspect]
     Active Substance: ECONAZOLE
     Indication: Fungal skin infection
     Dosage: UNK,NP
     Route: 003
     Dates: start: 20221216, end: 20221219
  2. MICONAZOLE NITRATE [Suspect]
     Active Substance: MICONAZOLE NITRATE
     Indication: Oral fungal infection
     Dosage: 10 MILLILITER, QID,2.5 ML X 4/DAY
     Route: 002
     Dates: start: 20221216, end: 20221219

REACTIONS (3)
  - Agranulocytosis [Recovered/Resolved]
  - Thrombocytopenia [Recovered/Resolved]
  - Lymphopenia [Recovered/Resolved]

NARRATIVE: CASE EVENT DATE: 20221219
